FAERS Safety Report 24156161 (Version 1)
Quarter: 2024Q3

REPORT INFORMATION
  Report Type: Spontaneous
  Country: US (occurrence: US)
  Receive Date: 20240731
  Receipt Date: 20240731
  Transmission Date: 20241017
  Serious: No
  Sender: BRISTOL MYERS SQUIBB
  Company Number: US-BRISTOL-MYERS SQUIBB COMPANY-2024-120912

PATIENT
  Age: 54 Year
  Sex: Male

DRUGS (1)
  1. THALOMID [Suspect]
     Active Substance: THALIDOMIDE
     Indication: Plasma cell myeloma
     Route: 048
     Dates: start: 202407

REACTIONS (7)
  - Fatigue [Unknown]
  - Pollakiuria [Unknown]
  - Blood pressure decreased [Unknown]
  - Dyspnoea [Unknown]
  - Muscle spasms [Unknown]
  - Dizziness [Unknown]
  - Abdominal discomfort [Unknown]
